FAERS Safety Report 22297406 (Version 1)
Quarter: 2023Q2

REPORT INFORMATION
  Report Type: Report from Study
  Country: MX (occurrence: MX)
  Receive Date: 20230509
  Receipt Date: 20230509
  Transmission Date: 20230721
  Serious: Yes (Other)
  Sender: FDA-Public Use
  Company Number: MX-ABBVIE-4758828

PATIENT
  Age: 58 Year
  Sex: Female
  Weight: 79 kg

DRUGS (4)
  1. HUMIRA [Suspect]
     Active Substance: ADALIMUMAB
     Indication: Crohn^s disease
     Dosage: FORM STRENGTH: 40MG
     Route: 058
     Dates: start: 20210219, end: 202305
  2. HUMIRA [Suspect]
     Active Substance: ADALIMUMAB
     Dosage: FORM STRENGTH: 40MG
     Route: 058
     Dates: start: 202305
  3. AZATHIOPRINE [Suspect]
     Active Substance: AZATHIOPRINE
     Indication: Crohn^s disease
     Route: 065
  4. PREDNISONE [Concomitant]
     Active Substance: PREDNISONE
     Indication: Crohn^s disease

REACTIONS (4)
  - Gastrointestinal haemorrhage [Recovering/Resolving]
  - Ulcer [Recovering/Resolving]
  - Anaemia [Recovering/Resolving]
  - Emotional disorder [Unknown]

NARRATIVE: CASE EVENT DATE: 20230301
